FAERS Safety Report 8859591 (Version 1)
Quarter: 2012Q4

REPORT INFORMATION
  Report Type: 
  Country: US (occurrence: US)
  Receive Date: 20121025
  Receipt Date: 20121025
  Transmission Date: 20130627
  Serious: Yes (Hospitalization)
  Sender: FDA-Public Use
  Company Number: US-SANOFI-AVENTIS-2012SA008655

PATIENT
  Age: 33 Year
  Sex: Male
  Weight: 79.54 kg

DRUGS (7)
  1. LANTUS [Suspect]
     Indication: TYPE II DIABETES MELLITUS
     Dosage: Dose: more than 35 units Dose:30 unit(s)
     Route: 058
     Dates: start: 19930104
  2. SOLOSTAR [Suspect]
     Indication: TYPE II DIABETES MELLITUS
     Dates: start: 19930104
  3. PROGRAF [Concomitant]
     Indication: IMMUNOSUPPRESSANT DRUG THERAPY
     Dates: start: 19930104
  4. PREDNISONE [Concomitant]
     Indication: STEROID THERAPY
     Dates: start: 19930104
  5. BACTRIM [Concomitant]
     Indication: ANTIBIOTIC THERAPY
     Dates: start: 19930104
  6. AMLODIPINE BESILATE [Concomitant]
     Indication: HYPERTENSION
     Dates: start: 19930104
  7. PRILOSEC [Concomitant]
     Indication: GERD
     Dates: start: 19930104

REACTIONS (3)
  - Renal transplant [Unknown]
  - Osteoporosis [Unknown]
  - Blood glucose increased [Not Recovered/Not Resolved]
